FAERS Safety Report 7712391-4 (Version None)
Quarter: 2011Q3

REPORT INFORMATION
  Report Type: 
  Country: None (occurrence: None)
  Receive Date: 20110823
  Receipt Date: 20110810
  Transmission Date: 20111222
  Serious: Yes (Other)
  Sender: FDA-Public Use
  Company Number: 7076307

PATIENT
  Age: 84 Year
  Sex: Female

DRUGS (3)
  1. MYTELASE [Suspect]
     Indication: MUSCULAR WEAKNESS
     Dosage: ORAL
     Route: 048
  2. LANZOR (LANSOPRAZOLE) (LANSOPRAZOLE) [Concomitant]
  3. LEVOTHYROXINE SODIUM [Suspect]
     Indication: THYROIDITIS
     Dosage: 1 DF ORAL
     Route: 048

REACTIONS (7)
  - BLOOD THYROID STIMULATING HORMONE INCREASED [None]
  - DRUG INTERACTION [None]
  - EYELID PTOSIS [None]
  - MUSCULOSKELETAL PAIN [None]
  - FATIGUE [None]
  - DYSPHAGIA [None]
  - MUSCULAR WEAKNESS [None]
